FAERS Safety Report 17801433 (Version 4)
Quarter: 2022Q2

REPORT INFORMATION
  Report Type: Report from Study
  Country: US (occurrence: US)
  Receive Date: 20200519
  Receipt Date: 20220609
  Transmission Date: 20220721
  Serious: No
  Sender: FDA-Public Use
  Company Number: NVSC2020US136065

PATIENT
  Age: 3 Year
  Sex: Male
  Weight: 15.4 kg

DRUGS (3)
  1. ILARIS [Suspect]
     Active Substance: CANAKINUMAB
     Indication: Still^s disease
     Dosage: 56 MG, Q3W
     Route: 058
     Dates: start: 20190411
  2. ILARIS [Suspect]
     Active Substance: CANAKINUMAB
     Dosage: 56 MG, Q3W
     Route: 058
  3. ILARIS [Suspect]
     Active Substance: CANAKINUMAB
     Dosage: 56 MG, Q3W
     Route: 058
     Dates: start: 20191012

REACTIONS (2)
  - Inappropriate schedule of product administration [Recovered/Resolved]
  - Inappropriate schedule of product administration [Unknown]

NARRATIVE: CASE EVENT DATE: 20200705
